FAERS Safety Report 23980749 (Version 2)
Quarter: 2024Q3

REPORT INFORMATION
  Report Type: Spontaneous
  Country: US (occurrence: US)
  Receive Date: 20240617
  Receipt Date: 20240716
  Transmission Date: 20241017
  Serious: Yes (Other)
  Sender: AUROBINDO
  Company Number: US-AUROBINDO-AUR-APL-2024-028860

PATIENT
  Age: 33 Year
  Sex: Female

DRUGS (9)
  1. RUFINAMIDE [Suspect]
     Active Substance: RUFINAMIDE
     Indication: Bipolar disorder
     Dosage: 200 MILLIGRAM, TWO TIMES A DAY
     Route: 065
  2. RUFINAMIDE [Suspect]
     Active Substance: RUFINAMIDE
     Indication: Generalised anxiety disorder
  3. RUFINAMIDE [Suspect]
     Active Substance: RUFINAMIDE
     Indication: Post-traumatic stress disorder
  4. RUFINAMIDE [Suspect]
     Active Substance: RUFINAMIDE
     Indication: Intermittent explosive disorder
  5. RUFINAMIDE [Suspect]
     Active Substance: RUFINAMIDE
     Indication: Cognitive disorder
  6. ESCITALOPRAM [Concomitant]
     Active Substance: ESCITALOPRAM OXALATE
     Indication: Product used for unknown indication
     Dosage: 20 MILLIGRAM, EVERY MORNING
     Route: 065
  7. HALOPERIDOL [Concomitant]
     Active Substance: HALOPERIDOL
     Indication: Product used for unknown indication
     Dosage: 15 MILLIGRAM, AT BED TIME
     Route: 065
  8. ZIPRASIDONE [Concomitant]
     Active Substance: ZIPRASIDONE
     Indication: Product used for unknown indication
     Dosage: 80 MILLIGRAM, 3 TIMES A DAY
     Route: 065
  9. ZOLPIDEM [Concomitant]
     Active Substance: ZOLPIDEM TARTRATE
     Indication: Product used for unknown indication
     Dosage: 10 MILLIGRAM, DAILY
     Route: 065

REACTIONS (4)
  - Hallucination, auditory [Recovering/Resolving]
  - Suicidal ideation [Recovering/Resolving]
  - Agitation [Recovered/Resolved]
  - Off label use [Unknown]
